FAERS Safety Report 5415332-8 (Version None)
Quarter: 2007Q3

REPORT INFORMATION
  Report Type: 
  Country: None (occurrence: None)
  Receive Date: 20070813
  Receipt Date: 20070802
  Transmission Date: 20080115
  Serious: Yes (Hospitalization)
  Sender: FDA-Public Use
  Company Number: 07H-087-0312834-00

PATIENT
  Sex: Male
  Weight: 52.6 kg

DRUGS (45)
  1. PRECEDEX [Suspect]
     Indication: SEDATION
     Dosage: 0.4-1.6 MCG/KG/HR, INTRAVENOUS
     Route: 042
     Dates: start: 20061017, end: 20061017
  2. HUMAN SERUM ALBUMIN (ALBUMIN HUMAN) [Concomitant]
  3. CEFOTIAM HYDROCHLORIDE [Concomitant]
  4. RANITIDINE HYDROCHLORIDE [Concomitant]
  5. NICARDIPINE HYDROCHLORIDE [Concomitant]
  6. NAFAMOSTAT MESILATE (NAFAMOSTAT MESILATE) [Concomitant]
  7. BROMHEXINE HYDROCHLORIDE (BROMHEXINE HYDROCHLORIDE) [Concomitant]
  8. PENTAZOCINE HYDROCHLORIDE (PENTAZOCINE HYDROCHLORIDE) [Concomitant]
  9. HYDROXYZINE HCL [Concomitant]
  10. HALOPERIDOL [Concomitant]
  11. HIGH-CALORIE INFUSION [Concomitant]
  12. AMINO ACID INFUSION (AMINO ACID) [Concomitant]
  13. MULTIVITAMIN INFUSION (MULTIVITAMIN /00831701/) [Concomitant]
  14. TRACE ELEMENT INFUSION (TRACE ELEMENTS) [Concomitant]
  15. VERAPAMIL HCL [Concomitant]
  16. CIPROFLOXACIN HYDROCHLORIDE [Concomitant]
  17. DIGOXIN [Concomitant]
  18. INSULIN (INSULIN) [Concomitant]
  19. POTASSIUM CHLORIDE [Concomitant]
  20. BUPRENORPHINE HYDROCHLORIDE [Concomitant]
  21. PANTHENOL (PANTHENOL) [Concomitant]
  22. GLYCERIN (GLYCEROL) [Concomitant]
  23. FOSFLUCONAZOLE [Concomitant]
  24. GLUCOSE (GLUCOSE) [Concomitant]
  25. SODIUM CHLORIDE 0.9% [Concomitant]
  26. VANCOMYCIN HYDROCHLORIDE [Concomitant]
  27. CEFTAZIDIME [Concomitant]
  28. MENATETRENONE (MENATETRENONE) [Concomitant]
  29. POTASSIUM PHOSPHATE DIBASIC (POTASSIUM PHOSPHATE DIBASIC) [Concomitant]
  30. DOBUTAMINE HCL [Concomitant]
  31. NOREPINEPHRINE BITARTRATE [Concomitant]
  32. LACTOMIN (LACTOMIN) [Concomitant]
  33. ASPIRIN [Concomitant]
  34. FAMOTIDINE [Concomitant]
  35. WARFARIN SODIUM [Concomitant]
  36. DROXIDOPA (DROXIDOPA) [Concomitant]
  37. FENTANYL CITRATE [Concomitant]
  38. MIDAZOLAM HCL [Concomitant]
  39. PROPOFOL [Concomitant]
  40. VECURONIUM BROMIDE [Concomitant]
  41. DOPAMINE HCL [Concomitant]
  42. HEPARIN SODIUM [Concomitant]
  43. PROTAMINE SULFATE [Concomitant]
  44. ELECTROLYTE SOLUTION (ELECTROLYTE SOLUTIONS) [Concomitant]
  45. LACTATED RINGER SOLUTION (RINGER-LACTATE /01126301/) [Concomitant]

REACTIONS (1)
  - MEDIASTINITIS [None]
